FAERS Safety Report 10211293 (Version 1)
Quarter: 2014Q2

REPORT INFORMATION
  Report Type: Report from Study
  Country: BR (occurrence: BR)
  Receive Date: 20140602
  Receipt Date: 20140602
  Transmission Date: 20141212
  Serious: Yes (Hospitalization)
  Sender: FDA-Public Use
  Company Number: BR-GLAXOSMITHKLINE-A1075304A

PATIENT
  Age: 82 Year
  Sex: Female
  Weight: 75 kg

DRUGS (8)
  1. SERETIDE [Suspect]
     Indication: ASTHMA
     Route: 065
     Dates: start: 2002
  2. PURAN T4 [Concomitant]
     Indication: THYROID DISORDER
     Dosage: 1TAB IN THE MORNING
     Route: 048
  3. ATENOLOL [Concomitant]
  4. AMLODIPINE BESILATE [Concomitant]
     Indication: BLOOD PRESSURE ABNORMAL
  5. PANTOPRAZOLE [Concomitant]
  6. GLIFAGE [Concomitant]
     Indication: DIABETES MELLITUS
  7. IMIPRAMINE [Concomitant]
     Indication: MICTURITION DISORDER
  8. INDAPAMIDE [Concomitant]

REACTIONS (1)
  - Pulmonary embolism [Recovered/Resolved]
